FAERS Safety Report 23757469 (Version 1)
Quarter: 2024Q2

REPORT INFORMATION
  Report Type: Spontaneous
  Country: US (occurrence: None)
  Receive Date: 20240418
  Receipt Date: 20240418
  Transmission Date: 20240715
  Serious: No
  Sender: FDA-Public Use
  Company Number: None

PATIENT
  Sex: Female

DRUGS (11)
  1. TACROLIMUS [Suspect]
     Active Substance: TACROLIMUS
     Indication: Stem cell transplant
     Dosage: FREQUENCY : TWICE A DAY;?
     Route: 048
     Dates: start: 20210422
  2. ACYCLOVIR [Concomitant]
     Active Substance: ACYCLOVIR
  3. AMBIEN [Concomitant]
  4. BUDESONIDE SUS [Concomitant]
  5. DECADRON [Concomitant]
     Active Substance: DEXAMETHASONE
  6. FLUCONAZOLE [Concomitant]
     Active Substance: FLUCONAZOLE
  7. MAGNESIUM [Concomitant]
     Active Substance: MAGNESIUM
  8. MELATONIN [Concomitant]
     Active Substance: MELATONIN
  9. PEPCID AC [Concomitant]
  10. PREDNISONE [Concomitant]
     Active Substance: PREDNISONE
  11. RESTASIS MUL EMU [Concomitant]

REACTIONS (1)
  - Oxygen saturation decreased [None]
